FAERS Safety Report 25484983 (Version 1)
Quarter: 2025Q2

REPORT INFORMATION
  Report Type: Spontaneous
  Country: FR (occurrence: FR)
  Receive Date: 20250626
  Receipt Date: 20250626
  Transmission Date: 20250717
  Serious: Yes (Congenital Anomaly, Other)
  Sender: RANBAXY
  Company Number: FR-SUN PHARMACEUTICAL INDUSTRIES LTD-2025RR-513879

PATIENT

DRUGS (2)
  1. SERTRALINE [Suspect]
     Active Substance: SERTRALINE HYDROCHLORIDE
     Indication: Bipolar disorder
     Dosage: 50 MILLIGRAM, DAILY
     Route: 064
     Dates: start: 20240924
  2. QUETIAPINE [Suspect]
     Active Substance: QUETIAPINE
     Indication: Bipolar disorder
     Dosage: 50 MILLIGRAM, DAILY
     Route: 064
     Dates: start: 20240924, end: 20250206

REACTIONS (2)
  - Meningocele [Not Recovered/Not Resolved]
  - Maternal exposure during pregnancy [Recovered/Resolved]

NARRATIVE: CASE EVENT DATE: 20240924
